FAERS Safety Report 4825126-X (Version None)
Quarter: 2005Q4

REPORT INFORMATION
  Report Type: 
  Country: None (occurrence: None)
  Receive Date: 20051109
  Receipt Date: 20051109
  Transmission Date: 20060501
  Serious: Yes (Life-Threatening, Hospitalization)
  Sender: FDA-Public Use
  Company Number: None

PATIENT
  Sex: Male
  Weight: 8.6 kg

DRUGS (3)
  1. CYTARABINE [Suspect]
     Indication: ACUTE MYELOID LEUKAEMIA
     Dosage: 40MG IV Q12 HOURS X 20
     Route: 042
     Dates: start: 20051020, end: 20051030
  2. DAUNOMYCIN [Suspect]
     Indication: ACUTE MYELOID LEUKAEMIA
     Dosage: 14 MG IV DAY 2, 4, 6
     Route: 042
     Dates: start: 20051021, end: 20051025
  3. VP-16 [Suspect]
     Indication: ACUTE MYELOID LEUKAEMIA
     Dosage: 40MG IV DAY 2-6
     Route: 042
     Dates: start: 20051021, end: 20051025

REACTIONS (8)
  - CAECITIS [None]
  - CENTRAL LINE INFECTION [None]
  - CHEST X-RAY ABNORMAL [None]
  - METABOLIC ACIDOSIS [None]
  - NASAL FLARING [None]
  - NEUTROPENIA [None]
  - STAPHYLOCOCCAL INFECTION [None]
  - TACHYPNOEA [None]
